FAERS Safety Report 5758595-1 (Version None)
Quarter: 2008Q2

REPORT INFORMATION
  Report Type: 
  Country: None (occurrence: None)
  Receive Date: 20080604
  Receipt Date: 20080530
  Transmission Date: 20081010
  Serious: Yes (Hospitalization)
  Sender: FDA-Public Use
  Company Number: B0521213A

PATIENT
  Age: 44 Year
  Sex: Male

DRUGS (6)
  1. SAWACILLIN [Suspect]
     Dosage: 750MG PER DAY
     Route: 048
     Dates: start: 20070120, end: 20070123
  2. UNKNOWN DRUG [Suspect]
     Indication: DRUG USE FOR UNKNOWN INDICATION
  3. UNKNOWN DRUG [Suspect]
  4. DASEN [Concomitant]
     Dates: start: 20070120, end: 20070123
  5. CHINESE HERBAL MEDICINE [Concomitant]
     Route: 048
     Dates: start: 20070120, end: 20070123
  6. BIOFERMIN [Concomitant]
     Dosage: 3G PER DAY
     Route: 048
     Dates: start: 20070120, end: 20070123

REACTIONS (2)
  - HAEMATOCHEZIA [None]
  - NAUSEA [None]
